FAERS Safety Report 9172598 (Version 1)
Quarter: 2013Q1

REPORT INFORMATION
  Report Type: Spontaneous
  Country: US (occurrence: US)
  Receive Date: 20130319
  Receipt Date: 20130319
  Transmission Date: 20140127
  Serious: Yes (Death)
  Sender: FDA-Public Use
  Company Number: US-PFIZER INC-2013087038

PATIENT
  Sex: Male

DRUGS (2)
  1. AZITHROMYCIN [Suspect]
     Dosage: UNK
  2. WARFARIN [Interacting]
     Dosage: UNK

REACTIONS (3)
  - Haemorrhage [Fatal]
  - International normalised ratio abnormal [Fatal]
  - Drug interaction [Fatal]
